FAERS Safety Report 5804608-8 (Version None)
Quarter: 2008Q3

REPORT INFORMATION
  Report Type: 
  Country: None (occurrence: None)
  Receive Date: 20080702
  Receipt Date: 20071113
  Transmission Date: 20090109
  Serious: Yes (Life-Threatening, Hospitalization, Disabling)
  Sender: FDA-Public Use
  Company Number: 531406

PATIENT
  Sex: Female
  Weight: 88.5 kg

DRUGS (2)
  1. KLONOPIN [Suspect]
     Indication: DRUG USE FOR UNKNOWN INDICATION
     Dosage: 0.5 MG ORAL
     Route: 048
     Dates: start: 20071001, end: 20071008
  2. LAMICTAL [Suspect]
     Indication: MOOD SWINGS
     Dosage: ORAL
     Route: 048
     Dates: start: 20071001

REACTIONS (1)
  - SUICIDE ATTEMPT [None]
